FAERS Safety Report 5820327-6 (Version None)
Quarter: 2008Q3

REPORT INFORMATION
  Report Type: 
  Country: None (occurrence: None)
  Receive Date: 20080724
  Receipt Date: 20070607
  Transmission Date: 20090109
  Serious: No
  Sender: FDA-Public Use
  Company Number: A0654608A

PATIENT
  Age: 50 Year
  Sex: Female

DRUGS (2)
  1. AVANDIA [Suspect]
     Dosage: 4MG UNKNOWN
     Route: 048
     Dates: start: 20050401
  2. METFORMIN [Concomitant]

REACTIONS (2)
  - FATIGUE [None]
  - WEIGHT INCREASED [None]
